FAERS Safety Report 16477116 (Version 2)
Quarter: 2020Q3

REPORT INFORMATION
  Report Type: Spontaneous
  Country: TR (occurrence: TR)
  Receive Date: 20190626
  Receipt Date: 20200805
  Transmission Date: 20201102
  Serious: Yes (Other)
  Sender: FDA-Public Use
  Company Number: TR-BEH-2019098888

PATIENT
  Age: 7 Year
  Sex: Male
  Weight: 27 kg

DRUGS (51)
  1. FIBROGAMMIN [Suspect]
     Active Substance: FACTOR XIII CONCENTRATE (HUMAN)
     Dosage: 1250 IU, TOT
     Route: 065
     Dates: start: 20190218
  2. TEGRETOL [Concomitant]
     Active Substance: CARBAMAZEPINE
  3. TRIFLUCAN [Concomitant]
     Active Substance: FLUCONAZOLE
     Indication: FUNGAL INFECTION
  4. ACYCLOVIR                          /00587301/ [Concomitant]
     Active Substance: ACYCLOVIR
     Indication: VIRAL INFECTION
  5. MEROPENEM. [Concomitant]
     Active Substance: MEROPENEM
     Indication: DEVICE RELATED INFECTION
  6. ENAPRIL [Concomitant]
     Active Substance: ENALAPRIL
     Indication: HYPERTENSION
  7. ALDOLAN [Concomitant]
     Indication: PAIN
  8. TAZOCIN [Concomitant]
     Active Substance: PIPERACILLIN SODIUM\TAZOBACTAM SODIUM
     Indication: DEVICE RELATED INFECTION
  9. TAZOCIN [Concomitant]
     Active Substance: PIPERACILLIN SODIUM\TAZOBACTAM SODIUM
     Indication: INFECTION
  10. VANCOMYCIN [Concomitant]
     Active Substance: VANCOMYCIN
     Indication: INFECTION
  11. MEROPENEM. [Concomitant]
     Active Substance: MEROPENEM
     Indication: INFECTION
  12. MEROPENEM. [Concomitant]
     Active Substance: MEROPENEM
     Indication: INFECTION
  13. ENAPRIL [Concomitant]
     Active Substance: ENALAPRIL
     Indication: HYPERTENSION
  14. DUPHALAC [Concomitant]
     Active Substance: LACTULOSE
     Indication: CONSTIPATION
  15. PAROL [Concomitant]
     Active Substance: ACETAMINOPHEN
     Indication: PAIN
  16. ONDANSETRON [Concomitant]
     Active Substance: ONDANSETRON
     Indication: MALNUTRITION
  17. ONDANSETRON [Concomitant]
     Active Substance: ONDANSETRON
     Indication: NAUSEA
  18. BACTRIM [Concomitant]
     Active Substance: SULFAMETHOXAZOLE\TRIMETHOPRIM
     Indication: IMMUNOSUPPRESSION
  19. FIBROGAMMIN [Suspect]
     Active Substance: FACTOR XIII CONCENTRATE (HUMAN)
     Indication: PROPHYLAXIS
     Dosage: 1250 IU, TOT
     Route: 065
     Dates: start: 20190212
  20. ALDOLAN [Concomitant]
     Indication: PAIN
  21. CONTRAMAL [Concomitant]
     Active Substance: TRAMADOL HYDROCHLORIDE
     Indication: PAIN
  22. CASPOFUNGIN [Concomitant]
     Active Substance: CASPOFUNGIN
     Indication: DEVICE RELATED INFECTION
  23. ULCURAN [Concomitant]
     Active Substance: RANITIDINE HYDROCHLORIDE
     Indication: NAUSEA
  24. BACTRIM [Concomitant]
     Active Substance: SULFAMETHOXAZOLE\TRIMETHOPRIM
     Indication: IMMUNOSUPPRESSION
  25. DUPHALAC [Concomitant]
     Active Substance: LACTULOSE
     Indication: CONSTIPATION
  26. FIBROGAMMIN [Suspect]
     Active Substance: FACTOR XIII CONCENTRATE (HUMAN)
     Dosage: 250 INTERNATIONAL UNIT
     Route: 065
  27. FIBROGAMMIN [Suspect]
     Active Substance: FACTOR XIII CONCENTRATE (HUMAN)
     Dosage: 1250 INTERNATIONAL UNIT
     Route: 065
  28. KEPPRA [Concomitant]
     Active Substance: LEVETIRACETAM
  29. PAROL [Concomitant]
     Active Substance: ACETAMINOPHEN
     Indication: PAIN
  30. MYCOSTATIN [Concomitant]
     Active Substance: NYSTATIN
     Indication: FUNGAL INFECTION
  31. TAZOCIN [Concomitant]
     Active Substance: PIPERACILLIN SODIUM\TAZOBACTAM SODIUM
     Indication: DEVICE RELATED INFECTION
  32. ULCURAN [Concomitant]
     Active Substance: RANITIDINE HYDROCHLORIDE
     Indication: MALNUTRITION
  33. NORVASC [Concomitant]
     Active Substance: AMLODIPINE BESYLATE
     Indication: HYPERTENSION
  34. BACTRIM [Concomitant]
     Active Substance: SULFAMETHOXAZOLE\TRIMETHOPRIM
     Indication: PROPHYLAXIS
  35. FIBROGAMMIN [Suspect]
     Active Substance: FACTOR XIII CONCENTRATE (HUMAN)
     Indication: COAGULATION FACTOR DEFICIENCY
     Dosage: UNK
     Route: 042
  36. FIBROGAMMIN [Suspect]
     Active Substance: FACTOR XIII CONCENTRATE (HUMAN)
     Dosage: 2000 IU, TOT
     Route: 065
     Dates: start: 20190111, end: 20190111
  37. CONTRAMAL [Concomitant]
     Active Substance: TRAMADOL HYDROCHLORIDE
     Indication: PAIN
  38. MYCOSTATIN [Concomitant]
     Active Substance: NYSTATIN
     Indication: FUNGAL INFECTION
  39. VANCOMYCIN [Concomitant]
     Active Substance: VANCOMYCIN
     Indication: INFECTION
  40. PANTPAS [Concomitant]
     Active Substance: PANTOPRAZOLE SODIUM
     Indication: NAUSEA
  41. FIBROGAMMIN [Suspect]
     Active Substance: FACTOR XIII CONCENTRATE (HUMAN)
     Dosage: 250 INTERNATIONAL UNIT
     Route: 065
  42. ACYCLOVIR                          /00587301/ [Concomitant]
     Active Substance: ACYCLOVIR
     Indication: VIRAL INFECTION
  43. VANCOMYCIN [Concomitant]
     Active Substance: VANCOMYCIN
     Indication: DEVICE RELATED INFECTION
  44. PANTPAS [Concomitant]
     Active Substance: PANTOPRAZOLE SODIUM
     Indication: MALNUTRITION
  45. ULCURAN [Concomitant]
     Active Substance: RANITIDINE HYDROCHLORIDE
     Indication: NAUSEA
  46. TRIFLUCAN [Concomitant]
     Active Substance: FLUCONAZOLE
     Indication: FUNGAL INFECTION
  47. CASPOFUNGIN [Concomitant]
     Active Substance: CASPOFUNGIN
     Indication: INFECTION
  48. CASPOFUNGIN [Concomitant]
     Active Substance: CASPOFUNGIN
     Indication: INFECTION
  49. PANTPAS [Concomitant]
     Active Substance: PANTOPRAZOLE SODIUM
     Indication: NAUSEA
  50. ONDANSETRON [Concomitant]
     Active Substance: ONDANSETRON
     Indication: NAUSEA
  51. NORVASC [Concomitant]
     Active Substance: AMLODIPINE BESYLATE
     Indication: HYPERTENSION

REACTIONS (3)
  - Factor XIII Inhibition [Recovered/Resolved]
  - Drug ineffective [Not Recovered/Not Resolved]
  - Drug ineffective [Not Recovered/Not Resolved]

NARRATIVE: CASE EVENT DATE: 20190111
